FAERS Safety Report 11545207 (Version 3)
Quarter: 2015Q4

REPORT INFORMATION
  Report Type: Spontaneous
  Country: US (occurrence: US)
  Receive Date: 20150924
  Receipt Date: 20151012
  Transmission Date: 20160304
  Serious: Yes (Death)
  Sender: FDA-Public Use
  Company Number: US-INSYS THERAPEUTICS, INC-INS201509-000392

PATIENT
  Age: 62 Year
  Sex: Female
  Weight: 62.6 kg

DRUGS (11)
  1. SUBSYS [Suspect]
     Active Substance: FENTANYL
     Indication: BREAKTHROUGH PAIN
     Dates: end: 20131205
  2. MEGACE [Concomitant]
     Active Substance: MEGESTROL ACETATE
  3. PROCHLORPERAZINE. [Concomitant]
     Active Substance: PROCHLORPERAZINE
  4. LASIX [Concomitant]
     Active Substance: FUROSEMIDE
  5. AMBIEN [Concomitant]
     Active Substance: ZOLPIDEM TARTRATE
  6. FENTANYL. [Concomitant]
     Active Substance: FENTANYL
     Dates: start: 20131105
  7. SUBSYS [Suspect]
     Active Substance: FENTANYL
     Indication: ABDOMINAL PAIN
  8. PREVACID [Concomitant]
     Active Substance: LANSOPRAZOLE
  9. DILAUDID [Concomitant]
     Active Substance: HYDROMORPHONE HYDROCHLORIDE
     Dates: start: 20131127
  10. ALOXI [Concomitant]
     Active Substance: PALONOSETRON HYDROCHLORIDE
     Indication: CHEMOTHERAPY
  11. ONDANSETRON [Concomitant]
     Active Substance: ONDANSETRON
     Indication: NAUSEA

REACTIONS (1)
  - Neoplasm progression [Fatal]

NARRATIVE: CASE EVENT DATE: 20131205
